FAERS Safety Report 7997993-2 (Version None)
Quarter: 2011Q4

REPORT INFORMATION
  Report Type: 
  Country: None (occurrence: None)
  Receive Date: 20111221
  Receipt Date: 20110720
  Transmission Date: 20120403
  Serious: No
  Sender: FDA-Public Use
  Company Number: US-GLAXOSMITHKLINE-A0640270A

PATIENT
  Age: 79 Year
  Sex: Male

DRUGS (13)
  1. CARDURA [Concomitant]
  2. UNKNOWN [Concomitant]
  3. LOVAZA [Suspect]
     Indication: PRODUCT USED FOR UNKNOWN INDICATION
     Dosage: 4CAP PER DAY
     Route: 048
  4. LISINOPRIL [Concomitant]
  5. FOLIC ACID [Concomitant]
  6. ASPIRIN [Concomitant]
  7. RELAFEN [Suspect]
     Indication: OSTEOARTHRITIS
     Dosage: 500MG PER DAY
     Route: 048
  8. QUININE SULFATE [Concomitant]
  9. SYNTHROID [Concomitant]
  10. PROSCAR [Concomitant]
  11. CARTIA XT [Concomitant]
  12. MULTI-VITAMIN [Concomitant]
  13. CALCIUM [Concomitant]

REACTIONS (5)
  - DIARRHOEA [None]
  - CONTUSION [None]
  - WOUND HAEMORRHAGE [None]
  - HYPERAESTHESIA [None]
  - LACERATION [None]
